FAERS Safety Report 17675483 (Version 2)
Quarter: 2020Q2

REPORT INFORMATION
  Report Type: Spontaneous
  Country: IT (occurrence: IT)
  Receive Date: 20200416
  Receipt Date: 20200417
  Transmission Date: 20200714
  Serious: Yes (Other)
  Sender: FDA-Public Use
  Company Number: IT-TEVA-2020-IT-1224736

PATIENT
  Age: 72 Year
  Sex: Female

DRUGS (5)
  1. BEDROCAN [Interacting]
     Active Substance: CANNABIS SATIVA FLOWERING TOP
     Indication: NEURALGIA
     Route: 048
  2. PREGABALIN. [Suspect]
     Active Substance: PREGABALIN
     Indication: NEURALGIA
     Route: 065
  3. IRBESARTAN. [Concomitant]
     Active Substance: IRBESARTAN
     Route: 065
  4. SALBUTAMOL [Concomitant]
     Active Substance: ALBUTEROL
     Route: 065
  5. FLUTICASONE. [Concomitant]
     Active Substance: FLUTICASONE
     Route: 065

REACTIONS (5)
  - Hallucination, visual [Recovered/Resolved]
  - Drug interaction [Recovered/Resolved]
  - Dysphoria [Recovered/Resolved]
  - Accidental overdose [Recovered/Resolved]
  - Somnolence [Recovered/Resolved]
